FAERS Safety Report 8618568 (Version 2)
Quarter: 2014Q1

REPORT INFORMATION
  Report Type: Spontaneous
  Country: US (occurrence: None)
  Receive Date: 20120323
  Receipt Date: 20130305
  Transmission Date: 20141002
  Serious: Yes (Hospitalization, Other)
  Sender: FDA-Public Use
  Company Number: 163-21880-11122028

PATIENT
  Age: 76 Year
  Sex: Male
  Weight: 86.18 kg

DRUGS (17)
  1. REVLIMID [Suspect]
     Indication: PLASMA CELL MYELOMA
     Dosage: 15 MG, DAILY X 21 DAYS, PO
     Route: 048
     Dates: start: 20110928
  2. PACKED RED BLOOD CELL (BLOOD CELLS, PACKED HUMAN) [Concomitant]
  3. ASA (ACETYLSALICYLIC ACID) [Concomitant]
  4. ZOCOR (SIMVASTATIN) [Concomitant]
  5. PLAVIX (CLOPIDOGREL SULFATE) [Concomitant]
  6. FUROSEMIDE [Concomitant]
  7. KLOR-CON (POTASSIUM CHLORIDE) UNKNOWN [Concomitant]
  8. ISOSORBIDE [Concomitant]
  9. VITA B50 (VITAMIN B) [Concomitant]
  10. COREG (CARVEDILOL) [Concomitant]
  11. LANTUS (INSULIN GLARGINE) [Concomitant]
  12. APIDRA (INSULIN GLULISINE) [Concomitant]
  13. NORVASC (AMLODIPINE BESILATE) [Concomitant]
  14. NITRO (GLYCERYL TRINITRATE) [Concomitant]
  15. DEXAMETHASONE [Concomitant]
  16. PROCHLORPERAZINE [Concomitant]
  17. FLOVENT (FLUTICASONE PROPIONATE) [Concomitant]

REACTIONS (3)
  - Cardiac failure congestive [None]
  - Pneumonia [None]
  - Cardiac failure congestive [None]
